FAERS Safety Report 9982505 (Version 1)
Quarter: 2014Q1

REPORT INFORMATION
  Report Type: Spontaneous
  Country: US (occurrence: None)
  Receive Date: 20140306
  Receipt Date: 20140306
  Transmission Date: 20141002
  Serious: Yes (Life-Threatening, Hospitalization)
  Sender: FDA-Public Use
  Company Number: None

PATIENT
  Age: 70 Year
  Sex: Female

DRUGS (12)
  1. METOPROLOL SUCCINATE - NOT GIVEN, 100 MG [Suspect]
     Route: 048
  2. CLOPIDOGREL [Concomitant]
  3. LISINOPRIL [Concomitant]
  4. OMEPRAZOLE [Concomitant]
  5. LEVOTHYROXINE [Concomitant]
  6. SIMVASTATIN [Concomitant]
  7. ASPIRIN [Concomitant]
  8. IBUPROFEN [Concomitant]
  9. ACYCLOVIR [Concomitant]
  10. MAXITROL (NEOMYCIN-POLYMYXIN-EXAMETHASONE) [Concomitant]
  11. LORTAB [Concomitant]
  12. MIRALAX [Concomitant]

REACTIONS (5)
  - Conjunctival ulcer [None]
  - Treatment failure [None]
  - Tachycardia [None]
  - Tachycardia [None]
  - Myocardial infarction [None]
